FAERS Safety Report 16173315 (Version 1)
Quarter: 2019Q2

REPORT INFORMATION
  Report Type: Spontaneous
  Country: DE (occurrence: DE)
  Receive Date: 20190409
  Receipt Date: 20190409
  Transmission Date: 20190711
  Serious: Yes (Life-Threatening)
  Sender: FDA-Public Use
  Company Number: DE-TORRENT-00013685

PATIENT
  Age: 52 Year
  Sex: Female
  Weight: 70 kg

DRUGS (3)
  1. PREGABALIN. [Suspect]
     Active Substance: PREGABALIN
     Indication: TRIGEMINAL NEURALGIA
     Dosage: DAILY DOSE: 150 MG MILLGRAM(S) EVERY DAYS
     Route: 048
     Dates: start: 201901, end: 20190310
  2. CARBAMAZEPIN [Suspect]
     Active Substance: CARBAMAZEPINE
     Indication: TRIGEMINAL NEURALGIA
     Route: 048
     Dates: start: 201901, end: 20190310
  3. METAMIZOL [Suspect]
     Active Substance: METAMIZOLE SODIUM
     Indication: TRIGEMINAL NEURALGIA
     Dosage: DAILY DOSE: 60 GTT DROP(S) EVERY DAYS
     Route: 048
     Dates: start: 201901, end: 20190310

REACTIONS (2)
  - Agranulocytosis [Not Recovered/Not Resolved]
  - Sepsis [Not Recovered/Not Resolved]

NARRATIVE: CASE EVENT DATE: 20190307
